FAERS Safety Report 12691353 (Version 1)
Quarter: 2016Q3

REPORT INFORMATION
  Report Type: Report from Study
  Country: US (occurrence: US)
  Receive Date: 20160826
  Receipt Date: 20160826
  Transmission Date: 20161109
  Serious: Yes (Other)
  Sender: FDA-Public Use
  Company Number: US-GILEAD-2016-0223388

PATIENT
  Age: 49 Year
  Sex: Female

DRUGS (1)
  1. IDELALISIB [Suspect]
     Active Substance: IDELALISIB
     Indication: NON-HODGKIN^S LYMPHOMA
     Dosage: 150 MG, BID
     Route: 048
     Dates: start: 20160312

REACTIONS (5)
  - Muscle spasms [Unknown]
  - Nausea [Unknown]
  - Abdominal pain upper [Unknown]
  - Alopecia [Unknown]
  - Gastric ulcer [Unknown]
